FAERS Safety Report 7450843-5 (Version None)
Quarter: 2011Q2

REPORT INFORMATION
  Report Type: 
  Country: None (occurrence: None)
  Receive Date: 20110422
  Receipt Date: 20110314
  Transmission Date: 20111010
  Serious: Yes (Death, Hospitalization)
  Sender: FDA-Public Use
  Company Number: WAES 1001USA03633

PATIENT
  Age: 71 Year
  Sex: Female

DRUGS (10)
  1. LASIX [Concomitant]
  2. ACYCLOVIR [Concomitant]
  3. SULFAMETHOXAZOLE TRIMETHOPRIM [Concomitant]
  4. VELCADE [Suspect]
     Indication: MULTIPLE MYELOMA
     Dosage: 2.2 MG/1X, IV
     Route: 042
     Dates: start: 20100124, end: 20100124
  5. VELCADE [Suspect]
     Indication: MULTIPLE MYELOMA
     Dosage: 2.2 MG/1X, IV
     Route: 042
     Dates: start: 20100112, end: 20100112
  6. VELCADE [Suspect]
     Indication: MULTIPLE MYELOMA
     Dosage: 2.2 MG/1X, IV
     Route: 042
     Dates: start: 20100122, end: 20100122
  7. VELCADE [Suspect]
     Indication: MULTIPLE MYELOMA
     Dosage: 2.2 MG/1X, IV
     Route: 042
     Dates: start: 20100115, end: 20100115
  8. VELCADE [Suspect]
     Indication: MULTIPLE MYELOMA
     Dosage: 2.2 MG/1X, IV
     Route: 042
     Dates: start: 20100119, end: 20100119
  9. CAP VORINOSTAT [Suspect]
     Indication: MULTIPLE MYELOMA
     Dosage: 400 MG DAILY, PO
     Route: 048
     Dates: start: 20100112, end: 20100124
  10. ALLOPURINOL [Concomitant]

REACTIONS (7)
  - CEREBRAL HAEMORRHAGE [None]
  - THROMBOCYTOPENIA [None]
  - HAEMOGLOBIN DECREASED [None]
  - PERFORMANCE STATUS DECREASED [None]
  - ASTHENIA [None]
  - HAEMATOCRIT DECREASED [None]
  - VASCULAR ENCEPHALOPATHY [None]
